FAERS Safety Report 6255322-9 (Version None)
Quarter: 2009Q3

REPORT INFORMATION
  Report Type: 
  Country: None (occurrence: None)
  Receive Date: 20090702
  Receipt Date: 20090623
  Transmission Date: 20100115
  Serious: Yes (Hospitalization)
  Sender: FDA-Public Use
  Company Number: PL-PFIZER INC-2009223786

PATIENT
  Age: 61 Year

DRUGS (12)
  1. BLINDED *NO SUBJECT DRUG [Suspect]
     Indication: BONE PAIN
     Dosage: UNK
     Route: 048
     Dates: start: 20090526, end: 20090605
  2. BLINDED *PLACEBO [Suspect]
     Indication: BONE PAIN
     Dosage: UNK
     Route: 048
     Dates: start: 20090526, end: 20090605
  3. BLINDED PREGABALIN [Suspect]
     Indication: BONE PAIN
     Dosage: UNK
     Route: 048
     Dates: start: 20090526, end: 20090605
  4. SEVREDOL [Concomitant]
     Dosage: UNK
     Route: 048
     Dates: start: 20090513
  5. DURAGESIC-100 [Concomitant]
     Dosage: UNK
     Route: 062
     Dates: start: 20080911
  6. MEGESTROL ACETATE [Concomitant]
     Dosage: UNK
     Route: 048
     Dates: start: 20090311
  7. METAMIZOLE [Concomitant]
     Dosage: UNK
     Route: 048
     Dates: start: 20090511
  8. METOCLOPRAMIDE [Concomitant]
     Dosage: UNK
     Route: 048
     Dates: start: 20080821
  9. KETOPROFEN [Concomitant]
     Dosage: UNK
     Route: 048
     Dates: start: 20080828
  10. ENOXAPARIN SODIUM [Concomitant]
     Dosage: UNK
     Route: 058
     Dates: start: 20080911
  11. OMEPRAZOL [Concomitant]
     Dosage: UNK
     Route: 048
     Dates: start: 20080911
  12. AMITRIPTYLINE [Concomitant]
     Dosage: UNK
     Route: 048
     Dates: start: 20090101

REACTIONS (3)
  - DECREASED APPETITE [None]
  - DISORIENTATION [None]
  - MUSCULOSKELETAL PAIN [None]
